FAERS Safety Report 11983146 (Version 1)
Quarter: 2016Q1

REPORT INFORMATION
  Report Type: Spontaneous
  Country: CN (occurrence: CN)
  Receive Date: 20160201
  Receipt Date: 20160201
  Transmission Date: 20160526
  Serious: Yes (Other)
  Sender: FDA-Public Use
  Company Number: CN-GLAXOSMITHKLINE-CN2016GSK011219

PATIENT
  Age: 22 Year
  Sex: Female

DRUGS (1)
  1. BACTROBAN [Suspect]
     Active Substance: MUPIROCIN\MUPIROCIN CALCIUM
     Indication: DERMATITIS
     Dosage: 3 G, TID
     Route: 061
     Dates: start: 20150915, end: 20150915

REACTIONS (4)
  - Syncope [Recovered/Resolved]
  - Loss of consciousness [Recovered/Resolved]
  - Hypersensitivity [Recovered/Resolved]
  - Hypoxia [Recovered/Resolved]

NARRATIVE: CASE EVENT DATE: 20150915
